FAERS Safety Report 9251047 (Version 1)
Quarter: 2013Q1

REPORT INFORMATION
  Report Type: Spontaneous
  Country: US (occurrence: None)
  Receive Date: 20130305
  Receipt Date: 20130305
  Transmission Date: 20140127
  Serious: Yes (Other)
  Sender: FDA-Public Use
  Company Number: 163-21880-12082282

PATIENT
  Age: 68 Year
  Sex: Male

DRUGS (2)
  1. REVLIMID [Suspect]
     Indication: MYELODYSPLASTIC SYNDROME
     Dosage: 21 IN 28 D
     Route: 048
     Dates: start: 20120806, end: 20120812
  2. JAKAFI (RUXOLITINIB) (15 MILLIGRAM, TABLETS) [Suspect]
     Indication: PRODUCT USED FOR UNKNOWN INDICATION
     Dosage: 2 IN 1 D
     Route: 048
     Dates: start: 20120301

REACTIONS (7)
  - Rash generalised [None]
  - Pruritus [None]
  - Contusion [None]
  - Localised infection [None]
  - Vomiting [None]
  - Dry skin [None]
  - Local swelling [None]
